FAERS Safety Report 6423267-7 (Version None)
Quarter: 2009Q4

REPORT INFORMATION
  Report Type: 
  Country: None (occurrence: None)
  Receive Date: 20091102
  Receipt Date: 20091023
  Transmission Date: 20100525
  Serious: Yes (Hospitalization, Other)
  Sender: FDA-Public Use
  Company Number: US-ELI_LILLY_AND_COMPANY-US200910006153

PATIENT
  Age: 42 Year
  Sex: Female
  Weight: 108.84 kg

DRUGS (3)
  1. PROZAC [Suspect]
     Indication: MAJOR DEPRESSION
     Dosage: 20 MG, DAILY (1/D)
     Route: 065
     Dates: start: 20091002
  2. GEODON [Concomitant]
     Dosage: 40 MG, EACH EVENING
     Route: 065
  3. NORCO [Concomitant]
     Dosage: UNK, EVERY 6 HRS
     Route: 065

REACTIONS (2)
  - ATRIOVENTRICULAR BLOCK SECOND DEGREE [None]
  - UPPER RESPIRATORY TRACT INFECTION [None]
